FAERS Safety Report 26068153 (Version 2)
Quarter: 2025Q4

REPORT INFORMATION
  Report Type: Report from Study
  Country: US (occurrence: US)
  Receive Date: 20251120
  Receipt Date: 20251215
  Transmission Date: 20260117
  Serious: Yes (Other)
  Sender: ABBVIE
  Company Number: US-ABBVIE-6556428

PATIENT
  Age: 75 Year
  Sex: Female
  Weight: 58.966 kg

DRUGS (3)
  1. CREON [Suspect]
     Active Substance: PANCRELIPASE AMYLASE\PANCRELIPASE LIPASE\PANCRELIPASE PROTEASE
     Indication: Pancreatic failure
     Dosage: 36,000 UNITS 3 PILLS WITH MEAL AND 2 PILS WITH SNACK?FORM STRENGTH: 36000 UNIT
     Route: 048
  2. CREON [Suspect]
     Active Substance: PANCRELIPASE AMYLASE\PANCRELIPASE LIPASE\PANCRELIPASE PROTEASE
     Indication: Pancreatic failure
     Dosage: DOSAGE 12,000 UNITS?FORM STRENGTH: 36000 UNIT
     Route: 048
     Dates: start: 202307
  3. INSULIN NOS [Concomitant]
     Active Substance: INSULIN NOS
     Indication: Diabetes mellitus

REACTIONS (5)
  - Adenocarcinoma [Recovering/Resolving]
  - Back pain [Recovered/Resolved]
  - Weight decreased [Not Recovered/Not Resolved]
  - Decreased appetite [Recovering/Resolving]
  - Carbohydrate antigen 19-9 increased [Recovering/Resolving]

NARRATIVE: CASE EVENT DATE: 20250301
